FAERS Safety Report 19971049 (Version 2)
Quarter: 2021Q4

REPORT INFORMATION
  Report Type: Spontaneous
  Country: JP (occurrence: JP)
  Receive Date: 20211019
  Receipt Date: 20211105
  Transmission Date: 20220303
  Serious: Yes (Other)
  Sender: FDA-Public Use
  Company Number: JP-VIIV HEALTHCARE LIMITED-50590

PATIENT
  Age: 80 Year
  Sex: Female

DRUGS (4)
  1. ZEFIX [Suspect]
     Active Substance: LAMIVUDINE
     Indication: Chronic hepatitis B
     Dosage: 100 MG
     Dates: start: 2004
  2. ZEFIX [Suspect]
     Active Substance: LAMIVUDINE
     Dosage: 15 MG
  3. HEPSERA [Suspect]
     Active Substance: ADEFOVIR DIPIVOXIL
     Indication: Chronic hepatitis B
     Dosage: 10 MG
     Dates: start: 2007
  4. HEPSERA [Suspect]
     Active Substance: ADEFOVIR DIPIVOXIL
     Dosage: 10 MG, ONCE EVERY FOUR DAYS

REACTIONS (2)
  - Renal failure [Unknown]
  - Drug resistance [Unknown]

NARRATIVE: CASE EVENT DATE: 20040101
